FAERS Safety Report 8597439-X (Version None)
Quarter: 2012Q3

REPORT INFORMATION
  Report Type: 
  Country: None (occurrence: None)
  Receive Date: 20120816
  Receipt Date: 20120807
  Transmission Date: 20120928
  Serious: Yes (Hospitalization)
  Sender: FDA-Public Use
  Company Number: JP-ABBOTT-12P-087-0930471-00

PATIENT
  Age: 61 Year
  Sex: Male
  Weight: 66.9 kg

DRUGS (2)
  1. LEUPROLIDE ACETATE [Suspect]
     Indication: PROSTATE CANCER
     Route: 058
     Dates: start: 20120104
  2. CASODEX [Suspect]
     Indication: PROSTATE CANCER
     Dates: start: 20120104, end: 20120402

REACTIONS (1)
  - HEPATIC FUNCTION ABNORMAL [None]
